FAERS Safety Report 15030794 (Version 2)
Quarter: 2019Q1

REPORT INFORMATION
  Report Type: Spontaneous
  Country: US (occurrence: US)
  Receive Date: 20180619
  Receipt Date: 20190312
  Transmission Date: 20190417
  Serious: Yes (Other)
  Sender: FDA-Public Use
  Company Number: US-009507513-1806USA006390

PATIENT
  Age: 32 Year
  Sex: Female
  Weight: 126.08 kg

DRUGS (1)
  1. NEXPLANON [Suspect]
     Active Substance: ETONOGESTREL
     Indication: CONTRACEPTION
     Dosage: 1 IMPLANT
     Route: 059
     Dates: start: 20180222

REACTIONS (6)
  - Product dose omission [Unknown]
  - Stillbirth [Recovered/Resolved]
  - Pregnancy with implant contraceptive [Recovered/Resolved]
  - Unintended pregnancy [Recovered/Resolved]
  - Complication associated with device [Recovered/Resolved]
  - Complication of delivery [Recovered/Resolved]

NARRATIVE: CASE EVENT DATE: 2018
